FAERS Safety Report 8450031-X (Version None)
Quarter: 2012Q2

REPORT INFORMATION
  Report Type: 
  Country: None (occurrence: None)
  Receive Date: 20120620
  Receipt Date: 20120611
  Transmission Date: 20120825
  Serious: Yes (Other)
  Sender: FDA-Public Use
  Company Number: JP-JNJFOC-20120518866

PATIENT
  Age: 37 Year
  Sex: Female

DRUGS (6)
  1. MAGMITT [Interacting]
     Indication: PRODUCT USED FOR UNKNOWN INDICATION
     Route: 048
  2. TRAMADOL HYDROCHLORIDE AND ACETAMINOPHEN [Suspect]
     Indication: PAIN
     Dosage: AS NEEDED
     Route: 048
  3. EPINASTINE HYDROCHLORIDE [Interacting]
     Indication: PRODUCT USED FOR UNKNOWN INDICATION
     Route: 048
  4. TRAMADOL HYDROCHLORIDE AND ACETAMINOPHEN [Suspect]
     Dosage: AS NECESSARY (P.R.N)
     Route: 048
  5. TRAMADOL HYDROCHLORIDE AND ACETAMINOPHEN [Suspect]
     Dosage: 2 DF X 2 PER 1 DAY
     Route: 048
  6. TRAMADOL HYDROCHLORIDE AND ACETAMINOPHEN [Suspect]
     Dosage: 8 DF, 1 PER 1 DAY
     Route: 048

REACTIONS (6)
  - CARDIOVASCULAR DISORDER [None]
  - DRUG PRESCRIBING ERROR [None]
  - ANAPHYLACTIC SHOCK [None]
  - HYPERHIDROSIS [None]
  - DRUG INTERACTION [None]
  - DYSPNOEA [None]
